FAERS Safety Report 4311835-8 (Version None)
Quarter: 2004Q1

REPORT INFORMATION
  Report Type: 
  Country: None (occurrence: None)
  Receive Date: 20040304
  Receipt Date: 20040113
  Transmission Date: 20041129
  Serious: Yes (Life-Threatening)
  Sender: FDA-Public Use
  Company Number: WAES 0401USA00977

PATIENT
  Age: 20 Day
  Sex: Female
  Weight: 1 kg

DRUGS (3)
  1. INDOCIN I.V. [Suspect]
     Indication: PATENT DUCTUS ARTERIOSUS
     Route: 042
     Dates: start: 20031217, end: 20031218
  2. INDOCIN I.V. [Suspect]
     Route: 042
     Dates: start: 20040101, end: 20040102
  3. INDOCIN I.V. [Suspect]
     Route: 042
     Dates: start: 20040103, end: 20040103

REACTIONS (6)
  - ANURIA [None]
  - DRUG INEFFECTIVE [None]
  - HAEMODIALYSIS [None]
  - NEONATAL DISORDER [None]
  - OLIGURIA [None]
  - RENAL FAILURE [None]
